FAERS Safety Report 5134012-X (Version None)
Quarter: 2006Q4

REPORT INFORMATION
  Report Type: 
  Country: None (occurrence: None)
  Receive Date: 20061023
  Receipt Date: 20061023
  Transmission Date: 20070319
  Serious: Yes (Other)
  Sender: FDA-Public Use
  Company Number: None

PATIENT
  Sex: Female
  Weight: 69.8539 kg

DRUGS (2)
  1. EFFEXOR XR [Suspect]
     Indication: DEPRESSION
     Dosage: 75 MG 3 X DAILY PO
     Route: 048
     Dates: start: 20021030, end: 20060501
  2. EFFEXOR XR [Suspect]
     Indication: DEPRESSION
     Dosage: 37.5 1 DAILY PO
     Route: 048
     Dates: start: 20060501, end: 20061022

REACTIONS (7)
  - ACTIVITIES OF DAILY LIVING IMPAIRED [None]
  - CONDITION AGGRAVATED [None]
  - DRUG WITHDRAWAL SYNDROME [None]
  - EPILEPSY [None]
  - HYPERTENSION [None]
  - IMPAIRED DRIVING ABILITY [None]
  - VISUAL DISTURBANCE [None]
